FAERS Safety Report 9116655 (Version 1)
Quarter: 2013Q1

REPORT INFORMATION
  Report Type: Spontaneous
  Country: US (occurrence: US)
  Receive Date: 20130225
  Receipt Date: 20130225
  Transmission Date: 20140127
  Serious: No
  Sender: FDA-Public Use
  Company Number: US-009507513-1302USA008935

PATIENT
  Age: 73 Year
  Sex: Male

DRUGS (2)
  1. SIMVASTATIN [Suspect]
     Route: 048
  2. ASPIRIN [Concomitant]

REACTIONS (1)
  - Muscle contracture [Unknown]
